FAERS Safety Report 10217848 (Version 4)
Quarter: 2014Q2

REPORT INFORMATION
  Report Type: Spontaneous
  Country: US (occurrence: US)
  Receive Date: 20140605
  Receipt Date: 20140617
  Transmission Date: 20141212
  Serious: No
  Sender: FDA-Public Use
  Company Number: US-GILEAD-2014-0104319

PATIENT
  Sex: Female

DRUGS (3)
  1. LETAIRIS [Suspect]
     Indication: PRODUCT USED FOR UNKNOWN INDICATION
     Dosage: 10 MG, QD
     Route: 065
     Dates: start: 20100916
  2. REMODULIN [Suspect]
     Indication: PRODUCT USED FOR UNKNOWN INDICATION
     Route: 065
  3. REVATIO [Concomitant]

REACTIONS (7)
  - Injection site erythema [Unknown]
  - Injection site rash [Unknown]
  - Injection site swelling [Unknown]
  - Injection site pain [Unknown]
  - Hypersensitivity [Unknown]
  - Pruritus [Unknown]
  - Oedema [Unknown]
